FAERS Safety Report 17195219 (Version 1)
Quarter: 2019Q4

REPORT INFORMATION
  Report Type: Spontaneous
  Country: US (occurrence: US)
  Receive Date: 20191224
  Receipt Date: 20191224
  Transmission Date: 20200122
  Serious: No
  Sender: FDA-Public Use
  Company Number: US-JNJFOC-20191229495

PATIENT
  Sex: Female
  Weight: 54.48 kg

DRUGS (1)
  1. MENS ROGAINE EXTRA STRENGTH [Suspect]
     Active Substance: MINOXIDIL
     Indication: PRODUCT USED FOR UNKNOWN INDICATION
     Dosage: UNDER THE ML LINE 2X A DAY
     Route: 061

REACTIONS (3)
  - Off label use [Unknown]
  - Alopecia [Unknown]
  - Product use issue [Unknown]
